FAERS Safety Report 10184962 (Version 1)
Quarter: 2014Q2

REPORT INFORMATION
  Report Type: Report from Study
  Country: AU (occurrence: None)
  Receive Date: 20140519
  Receipt Date: 20140519
  Transmission Date: 20141212
  Serious: Yes (Other)
  Sender: FDA-Public Use
  Company Number: 2014-19546

PATIENT
  Age: 78 Year
  Sex: Female

DRUGS (3)
  1. EYLEA [Suspect]
     Indication: AGE-RELATED MACULAR DEGENERATION
     Route: 031
     Dates: start: 20140116
  2. MACU VISION (ASCORBIC ACID, CUPRIC OXIDE, TOCOPHERYL ACID SUCCINATE, ZINC OXIDE) [Concomitant]
  3. LUTEIN /01638501/ (XANTOFYL) [Concomitant]

REACTIONS (2)
  - Eye haemorrhage [None]
  - Inappropriate schedule of drug administration [None]
